FAERS Safety Report 20130140 (Version 1)
Quarter: 2021Q4

REPORT INFORMATION
  Report Type: Spontaneous
  Country: US (occurrence: None)
  Receive Date: 20211129
  Receipt Date: 20211129
  Transmission Date: 20220303
  Serious: No
  Sender: FDA-Public Use
  Company Number: None

PATIENT
  Age: 55 Year
  Sex: Male

DRUGS (1)
  1. ZORTRESS [Suspect]
     Active Substance: EVEROLIMUS
     Dosage: FREQUENCY : TWICE A DAY;?
     Route: 048
     Dates: start: 20181001

REACTIONS (4)
  - Somnolence [None]
  - Loss of consciousness [None]
  - Alcohol use [None]
  - Alcohol interaction [None]

NARRATIVE: CASE EVENT DATE: 20211127
